FAERS Safety Report 5069897-9 (Version None)
Quarter: 2006Q3

REPORT INFORMATION
  Report Type: 
  Country: None (occurrence: None)
  Receive Date: 20060731
  Receipt Date: 20060724
  Transmission Date: 20061208
  Serious: Yes (Hospitalization)
  Sender: FDA-Public Use
  Company Number: VISP-NO-0607S-0482

PATIENT
  Age: 45 Year
  Sex: Female

DRUGS (13)
  1. VISIPAQUE [Suspect]
     Indication: DEPRESSED LEVEL OF CONSCIOUSNESS
     Dosage: 150 ML, SINGLE DOSE, I.V.
     Route: 042
     Dates: start: 20060619, end: 20060619
  2. IOMEPROL (IOMERON) [Concomitant]
  3. NIMODIPINE (NIMOTOP) [Concomitant]
  4. DEPAKENE [Concomitant]
  5. HEPARIN (HEPARINE) [Concomitant]
  6. LOVENOX [Concomitant]
  7. ORGARAN [Concomitant]
  8. ONDANSETRON HYDROCHLORIDE (ZOPHREN) [Concomitant]
  9. OMEPRAZOLE [Concomitant]
  10. CERNEVIT-12 [Concomitant]
  11. DIPRIVAN [Concomitant]
  12. MANNITOL [Concomitant]
  13. TRANXENE [Concomitant]

REACTIONS (4)
  - ACUTE GENERALISED EXANTHEMATOUS PUSTULOSIS [None]
  - DERMATITIS BULLOUS [None]
  - ERYTHEMA [None]
  - SKIN EXFOLIATION [None]
